FAERS Safety Report 4717655-4 (Version None)
Quarter: 2005Q3

REPORT INFORMATION
  Report Type: 
  Country: None (occurrence: None)
  Receive Date: 20050713
  Receipt Date: 20050429
  Transmission Date: 20060218
  Serious: Yes (Death)
  Sender: FDA-Public Use
  Company Number: 403624

PATIENT

DRUGS (1)
  1. FUZEON [Suspect]
     Indication: HIV INFECTION

REACTIONS (1)
  - DEATH [None]
